FAERS Safety Report 8907503 (Version 1)
Quarter: 2012Q4

REPORT INFORMATION
  Report Type: 
  Country: PL (occurrence: PL)
  Receive Date: 20121114
  Receipt Date: 20121114
  Transmission Date: 20130627
  Serious: Yes (Life-Threatening, Hospitalization, Disabling)
  Sender: FDA-Public Use
  Company Number: PL-PFIZER INC-2012280612

PATIENT
  Age: 58 Year
  Sex: Female
  Weight: 76 kg

DRUGS (2)
  1. SUTENT [Suspect]
     Indication: RENAL CANCER
     Dosage: 50 mg, cyclic
     Route: 048
  2. SUTENT [Suspect]
     Dosage: 37.5 mg  daily, cyclic
     Route: 048
     Dates: start: 20121017, end: 20121020

REACTIONS (1)
  - Myocardial infarction [Recovered/Resolved with Sequelae]
